FAERS Safety Report 6107503-2 (Version None)
Quarter: 2009Q1

REPORT INFORMATION
  Report Type: 
  Country: None (occurrence: None)
  Receive Date: 20090305
  Receipt Date: 20090219
  Transmission Date: 20090719
  Serious: Yes (Other)
  Sender: FDA-Public Use
  Company Number: CHPA2009US01196

PATIENT
  Age: 76 Year
  Sex: Female
  Weight: 69.8 kg

DRUGS (13)
  1. TRANSDERM SCOP (NCH) (HYOSCINE HYDROBROMI) TRANS-THERAPEUTIC-SYSTEM [Suspect]
     Indication: SALIVARY HYPERSECRETION
     Dosage: 1.5 MG,Q72H,TRANSDERMAL
     Route: 062
     Dates: start: 20081201
  2. LIPSONIC [Concomitant]
  3. LIPITO (ATORVASTATIN) [Concomitant]
  4. NORVASC [Concomitant]
  5. MULTIVITAMINS (ASCORBIC ACID, ERGOCALCIFEROL, FOLIC ACID, NICOTINAMIDE [Concomitant]
  6. CALCIUM W/VITAMIN D NOS (CALCIUM, VITAMIN D NOS) [Concomitant]
  7. RESTASIS (CICLOSPORIN) [Concomitant]
  8. LIPITOR/NET/ (ATORVASTATIN CALCIUM) [Concomitant]
  9. ATENOLOL [Concomitant]
  10. AMLODIPINE BESYLATE [Concomitant]
  11. ARICEPT [Concomitant]
  12. LEVSIN (HYOSCYAMINE SULFATE) [Concomitant]
  13. GENTEAL GEL (HYPROMELLOSE) [Concomitant]

REACTIONS (7)
  - DYSKINESIA [None]
  - HALLUCINATION [None]
  - OFF LABEL USE [None]
  - PARKINSON'S DISEASE [None]
  - RESTLESSNESS [None]
  - SPEECH DISORDER [None]
  - VISION BLURRED [None]
